FAERS Safety Report 6786012-1 (Version None)
Quarter: 2010Q2

REPORT INFORMATION
  Report Type: 
  Country: None (occurrence: None)
  Receive Date: 20100621
  Receipt Date: 20100621
  Transmission Date: 20101027
  Serious: Yes (Hospitalization)
  Sender: FDA-Public Use
  Company Number: None

PATIENT
  Sex: Female
  Weight: 63.6 kg

DRUGS (2)
  1. CISPLATIN [Suspect]
     Dosage: 82 MG
  2. ETOPOSIDE [Suspect]
     Dosage: 303 MG

REACTIONS (7)
  - CATHETER SITE ERYTHEMA [None]
  - DEHYDRATION [None]
  - DEVICE LEAKAGE [None]
  - HYPOKALAEMIA [None]
  - NEUTROPHIL COUNT DECREASED [None]
  - PLATELET COUNT DECREASED [None]
  - VOMITING [None]
